FAERS Safety Report 19172250 (Version 2)
Quarter: 2021Q4

REPORT INFORMATION
  Report Type: Other
  Country: AU (occurrence: AU)
  Receive Date: 20210423
  Receipt Date: 20211022
  Transmission Date: 20220303
  Serious: Yes (Other)
  Sender: FDA-Public Use
  Company Number: AU-ROCHE-2815057

PATIENT
  Age: 53 Year
  Sex: Female

DRUGS (14)
  1. GANCICLOVIR [Suspect]
     Active Substance: GANCICLOVIR
     Indication: Cytomegalovirus infection reactivation
     Route: 042
  2. CYCLOSPORINE [Suspect]
     Active Substance: CYCLOSPORINE
     Indication: Product used for unknown indication
     Route: 065
  3. CIDOFOVIR [Suspect]
     Active Substance: CIDOFOVIR
     Indication: Product used for unknown indication
     Route: 065
  4. FLUDARABINE PHOSPHATE [Suspect]
     Active Substance: FLUDARABINE PHOSPHATE
     Indication: Product used for unknown indication
     Route: 065
  5. FOSCARNET SODIUM [Suspect]
     Active Substance: FOSCARNET SODIUM
     Indication: Product used for unknown indication
     Route: 065
  6. MELPHALAN [Suspect]
     Active Substance: MELPHALAN
     Indication: Product used for unknown indication
     Route: 065
  7. METHOTREXATE [Suspect]
     Active Substance: METHOTREXATE
     Indication: Product used for unknown indication
     Dosage: 5 MG/M2 IV DAYS +1, 3, 6, 11
     Route: 065
  8. METHYLPREDNISOLONE [Suspect]
     Active Substance: METHYLPREDNISOLONE
     Indication: Product used for unknown indication
     Dosage: 1 MG/KG IV TWICE DAILY
     Route: 065
  9. RITUXIMAB [Suspect]
     Active Substance: RITUXIMAB
     Indication: Immunosuppression
     Dosage: FROM D +113
     Route: 041
  10. TACROLIMUS [Suspect]
     Active Substance: TACROLIMUS
     Indication: Product used for unknown indication
     Route: 065
  11. THYMOGLOBULINE [Suspect]
     Active Substance: LAPINE T-LYMPHOCYTE IMMUNE GLOBULIN
     Indication: Product used for unknown indication
     Dosage: 4.5 MG/KG TOTAL GIVEN ON DAYS -2 TO 0,
     Route: 065
  12. VALGANCICLOVIR [Suspect]
     Active Substance: VALGANCICLOVIR
     Indication: Product used for unknown indication
     Dosage: 900 MG PO TWICE DAILY FROM DAY -8 TO -1.
     Route: 048
  13. RUXOLITINIB [Suspect]
     Active Substance: RUXOLITINIB
     Indication: Product used for unknown indication
     Route: 065
  14. LETERMOVIR [Concomitant]
     Active Substance: LETERMOVIR

REACTIONS (9)
  - Cytomegalovirus infection reactivation [Unknown]
  - Epstein-Barr virus infection reactivation [Unknown]
  - Cystitis haemorrhagic [Unknown]
  - Post transplant lymphoproliferative disorder [Unknown]
  - Gastrointestinal haemorrhage [Unknown]
  - Adenovirus infection [Unknown]
  - Dysuria [Unknown]
  - Treatment failure [Unknown]
  - Colitis [Unknown]
